FAERS Safety Report 20617188 (Version 1)
Quarter: 2022Q1

REPORT INFORMATION
  Report Type: Spontaneous
  Country: ES (occurrence: ES)
  Receive Date: 20220321
  Receipt Date: 20220321
  Transmission Date: 20220424
  Serious: Yes (Other)
  Sender: FDA-Public Use
  Company Number: ES-KYOWAKIRIN-2022BKK002223

PATIENT

DRUGS (2)
  1. POTELIGEO [Suspect]
     Active Substance: MOGAMULIZUMAB-KPKC
     Indication: Cutaneous T-cell lymphoma
     Dosage: 60 MG, AS PER PROTOCOL
     Route: 042
     Dates: start: 20200528, end: 20200804
  2. PREDNISONE [Concomitant]
     Active Substance: PREDNISONE
     Indication: Pruritus
     Dosage: 20 MG, ONCE A DAY
     Route: 048
     Dates: start: 20200205, end: 20200909

REACTIONS (2)
  - Lentigo [Unknown]
  - Drug eruption [Unknown]

NARRATIVE: CASE EVENT DATE: 20200811
